FAERS Safety Report 5236241-3 (Version None)
Quarter: 2007Q1

REPORT INFORMATION
  Report Type: 
  Country: None (occurrence: None)
  Receive Date: 20061208
  Receipt Date: 20050524
  Transmission Date: 20070707
  Serious: Yes (Other)
  Sender: FDA-Public Use
  Company Number: 2005UW07980

PATIENT
  Age: 36 Year
  Sex: Male
  Weight: 86.182 kg

DRUGS (2)
  1. CRESTOR [Suspect]
     Indication: BLOOD CHOLESTEROL INCREASED
     Dosage: 10 MG PO
     Route: 048
     Dates: start: 20050419
  2. LISINOPRIL [Concomitant]

REACTIONS (1)
  - RECTAL HAEMORRHAGE [None]
